FAERS Safety Report 15574986 (Version 1)
Quarter: 2018Q4

REPORT INFORMATION
  Report Type: Spontaneous
  Country: US (occurrence: US)
  Receive Date: 20181101
  Receipt Date: 20181101
  Transmission Date: 20190205
  Serious: No
  Sender: FDA-Public Use
  Company Number: US-JNJFOC-20181011211

PATIENT
  Sex: Female
  Weight: 127.46 kg

DRUGS (1)
  1. TYLENOL EXTRA STRENGTH [Suspect]
     Active Substance: ACETAMINOPHEN
     Indication: UPPER LIMB FRACTURE
     Dosage: TOOK 2 AT 12PM AND 2 MORE AT 1PM
     Route: 048

REACTIONS (1)
  - Product use in unapproved indication [Unknown]
